FAERS Safety Report 6619849-X (Version None)
Quarter: 2010Q1

REPORT INFORMATION
  Report Type: 
  Country: None (occurrence: None)
  Receive Date: 20100303
  Receipt Date: 20100216
  Transmission Date: 20100710
  Serious: Yes (Death)
  Sender: FDA-Public Use
  Company Number: 2010020076

PATIENT
  Age: 63 Year
  Sex: Female

DRUGS (2)
  1. CARISOPRODOL [Suspect]
  2. INSULIN [Suspect]

REACTIONS (1)
  - COMPLETED SUICIDE [None]
